FAERS Safety Report 24406424 (Version 1)
Quarter: 2024Q4

REPORT INFORMATION
  Report Type: Spontaneous
  Country: DE (occurrence: DE)
  Receive Date: 20241007
  Receipt Date: 20241007
  Transmission Date: 20250115
  Serious: Yes (Life-Threatening, Hospitalization, Congenital Anomaly)
  Sender: MYLAN
  Company Number: DE-DCGMA-24203946

PATIENT
  Sex: Male
  Weight: 2.84 kg

DRUGS (3)
  1. SERTRALINE [Suspect]
     Active Substance: SERTRALINE HYDROCHLORIDE
     Indication: Product used for unknown indication
     Dosage: 0.5 DOSAGE FORM, QD (DAILY DOSE: 0.5 {DF} EVERY 1 DAY)
     Route: 064
  2. INSULIN LISPRO [Suspect]
     Active Substance: INSULIN LISPRO
     Indication: Product used for unknown indication
     Dosage: UNK, 0-9-9-0
     Route: 064
  3. PROTAPHANE [Suspect]
     Active Substance: INSULIN HUMAN
     Indication: Product used for unknown indication
     Dosage: UNK, 0-0-24
     Route: 064

REACTIONS (5)
  - Congenital multiplex arthrogryposis [Unknown]
  - Talipes [Unknown]
  - Meningomyelocele [Unknown]
  - Hydrops foetalis [Unknown]
  - Foetal exposure during pregnancy [Unknown]

NARRATIVE: CASE EVENT DATE: 20240605
